FAERS Safety Report 8411627-4 (Version None)
Quarter: 2012Q2

REPORT INFORMATION
  Report Type: 
  Country: None (occurrence: None)
  Receive Date: 20120605
  Receipt Date: 20120509
  Transmission Date: 20120825
  Serious: No
  Sender: FDA-Public Use
  Company Number: US-AMGEN-USASP2012029473

PATIENT
  Age: 50 Year
  Sex: Female

DRUGS (3)
  1. FOLIC ACID [Concomitant]
  2. ENBREL [Suspect]
     Indication: PRODUCT USED FOR UNKNOWN INDICATION
     Dosage: 50 MG, QWK
     Dates: start: 20100701
  3. METHOTREXATE [Concomitant]

REACTIONS (1)
  - APHTHOUS STOMATITIS [None]
